FAERS Safety Report 5333361-X (Version None)
Quarter: 2007Q2

REPORT INFORMATION
  Report Type: 
  Country: None (occurrence: None)
  Receive Date: 20070524
  Receipt Date: 20070514
  Transmission Date: 20071010
  Serious: Yes (Hospitalization)
  Sender: FDA-Public Use
  Company Number: US-AMGEN-STX224816

PATIENT
  Sex: Female

DRUGS (2)
  1. ENBREL [Suspect]
     Indication: RHEUMATOID ARTHRITIS
     Route: 058
     Dates: start: 20070201
  2. METHOTREXATE [Concomitant]
     Route: 048
     Dates: start: 20060501

REACTIONS (2)
  - ACCIDENTAL NEEDLE STICK [None]
  - CERVICAL VERTEBRAL FRACTURE [None]
